FAERS Safety Report 21063063 (Version 2)
Quarter: 2022Q4

REPORT INFORMATION
  Report Type: Spontaneous
  Country: US (occurrence: US)
  Receive Date: 20220711
  Receipt Date: 20221116
  Transmission Date: 20230113
  Serious: Yes (Other)
  Sender: FDA-Public Use
  Company Number: US-BRISTOL-MYERS SQUIBB COMPANY-2022-057379

PATIENT
  Age: 86 Year
  Sex: Female

DRUGS (1)
  1. INREBIC [Suspect]
     Active Substance: FEDRATINIB HYDROCHLORIDE
     Indication: Myelofibrosis
     Dosage: TAKE TWO TABLETS BY MOUTH ONCE DAILY, 200MG DAILY.??PATIENT ONLY TOOK MEDICATION SPORADICALLY.
     Route: 048
     Dates: start: 20200727, end: 20221017

REACTIONS (2)
  - Urinary tract infection [Unknown]
  - Delirium [Unknown]
